FAERS Safety Report 5232620-9 (Version None)
Quarter: 2007Q1

REPORT INFORMATION
  Report Type: 
  Country: None (occurrence: None)
  Receive Date: 20070205
  Receipt Date: 20070129
  Transmission Date: 20070707
  Serious: Yes (Hospitalization, Other)
  Sender: FDA-Public Use
  Company Number: 2006SP004259

PATIENT
  Age: 47 Year
  Sex: Female
  Weight: 68.7 kg

DRUGS (23)
  1. TEMODAR [Suspect]
     Indication: GLIOBLASTOMA MULTIFORME
     Dosage: 75 MG/M2; QD; PO
     Route: 048
     Dates: start: 20060829, end: 20060925
  2. RADIATION THERAPY [Suspect]
     Indication: GLIOBLASTOMA MULTIFORME
     Dosage: QD;
     Dates: start: 20060829, end: 20061003
  3. BACTRIM DS [Suspect]
     Indication: DRUG USE FOR UNKNOWN INDICATION
     Dosage: 1 DF; TIW; PO
     Route: 048
     Dates: end: 20061020
  4. DEXAMETHASONE [Suspect]
     Indication: DRUG USE FOR UNKNOWN INDICATION
     Dates: end: 20061001
  5. KEPPRA [Concomitant]
  6. PREMPRO [Concomitant]
  7. ZOFRAN [Concomitant]
  8. RUTOVIT C [Concomitant]
  9. LYCOPENE [Concomitant]
  10. COQ10 [Concomitant]
  11. SHARK-LIVER OIL [Concomitant]
  12. ARNICA MONTANA [Concomitant]
  13. HAMAMELIS VIRGINIANA [Concomitant]
  14. CALCIUM PHOSPHATE [Concomitant]
  15. OMEGA 3 FISH OIL [Concomitant]
  16. FERROUS PHOSPHATE [Concomitant]
  17. M.V.I. [Concomitant]
  18. ASCORBIC ACID [Concomitant]
  19. VITAMIN D [Concomitant]
  20. VITAMIN E [Concomitant]
  21. VITAMIN B-12 [Concomitant]
  22. BETA-CAROTENE GISAND /00540801/ [Concomitant]
  23. FLAXSEED OIL [Concomitant]

REACTIONS (9)
  - ANORECTAL CELLULITIS [None]
  - APLASTIC ANAEMIA [None]
  - BONE MARROW FAILURE [None]
  - FEBRILE NEUTROPENIA [None]
  - GLIOBLASTOMA MULTIFORME [None]
  - HAEMORRHOIDS [None]
  - LEUKOPENIA [None]
  - MALIGNANT NEOPLASM PROGRESSION [None]
  - THROMBOCYTOPENIA [None]
